FAERS Safety Report 24639608 (Version 3)
Quarter: 2025Q4

REPORT INFORMATION
  Report Type: Spontaneous
  Country: EU (occurrence: EU)
  Receive Date: 20241119
  Receipt Date: 20251106
  Transmission Date: 20260117
  Serious: Yes (Other)
  Sender: SANDOZ
  Company Number: EU-002147023-PHHY2011PL82086

PATIENT
  Age: 64 Year
  Sex: Male

DRUGS (10)
  1. AZATHIOPRINE [Suspect]
     Active Substance: AZATHIOPRINE
     Indication: Dermatitis atopic
     Dosage: UNK UKN, UNK
     Route: 065
  2. CYCLOSPORINE [Suspect]
     Active Substance: CYCLOSPORINE
     Indication: Dermatitis atopic
     Dosage: 2.5 MG/KG, UNK
     Route: 065
  3. CYCLOSPORINE [Suspect]
     Active Substance: CYCLOSPORINE
     Dosage: 3.5 MG/KG, UNK
     Route: 065
  4. METHOTREXATE [Suspect]
     Active Substance: METHOTREXATE
     Indication: Dermatitis atopic
     Dosage: UNK UKN, UNK
     Route: 065
  5. MYCOPHENOLATE MOFETIL [Suspect]
     Active Substance: MYCOPHENOLATE MOFETIL
     Indication: Dermatitis atopic
     Dosage: UNK
     Route: 065
  6. NEOTIGASON [Suspect]
     Active Substance: ACITRETIN
     Indication: Dermatitis atopic
     Dosage: UNK UKN, UNK
     Route: 065
  7. ACITRETIN [Concomitant]
     Active Substance: ACITRETIN
     Indication: Dermatitis atopic
     Dosage: UNK UKN, UNK
     Route: 065
  8. ACITRETIN [Concomitant]
     Active Substance: ACITRETIN
     Dosage: UNK UKN, UNK
     Route: 065
  9. ACITRETIN [Concomitant]
     Active Substance: ACITRETIN
     Dosage: UNK UKN, UNK
     Route: 065
  10. METHOTREXATE [Concomitant]
     Active Substance: METHOTREXATE
     Indication: Dermatitis atopic
     Dosage: SYSTEMIC
     Route: 065

REACTIONS (7)
  - Gastrointestinal disorder [Recovered/Resolved]
  - Dermatitis atopic [Unknown]
  - Cutaneous T-cell lymphoma refractory [Not Recovered/Not Resolved]
  - Lymphocytosis [Recovered/Resolved]
  - Thrombocytosis [Recovered/Resolved]
  - Drug ineffective [Unknown]
  - Off label use [Unknown]
